FAERS Safety Report 8825757 (Version 3)
Quarter: 2012Q4

REPORT INFORMATION
  Report Type: 
  Country: GB (occurrence: GB)
  Receive Date: 20121004
  Receipt Date: 20121024
  Transmission Date: 20130627
  Serious: Yes (Other)
  Sender: FDA-Public Use
  Company Number: GB-VERTEX PHARMACEUTICAL INC.-2012-022360

PATIENT
  Age: 33 Year
  Sex: Male

DRUGS (5)
  1. VX-950 [Suspect]
     Indication: HEPATITIS C
     Dosage: Dosage Form: Tablet
     Route: 048
     Dates: start: 20120917
  2. PEG INTERFERON [Concomitant]
     Indication: HEPATITIS C
     Dosage: UNK, qw
     Route: 058
     Dates: start: 20120917
  3. PEG INTERFERON [Concomitant]
     Dosage: Dosage Form: Injection
     Route: 058
     Dates: start: 20120917
  4. RIBAVIRIN [Concomitant]
     Indication: HEPATITIS C
     Dosage: UNK, bid
     Route: 048
     Dates: start: 20120917
  5. RIBAVIRIN [Concomitant]
     Dosage: Dosage Form: Tablets
     Route: 048
     Dates: start: 20120917

REACTIONS (12)
  - Eczema [Not Recovered/Not Resolved]
  - Lacrimation increased [Unknown]
  - Poor quality sleep [Not Recovered/Not Resolved]
  - Migraine [Unknown]
  - Asthenia [Unknown]
  - Abdominal pain upper [Not Recovered/Not Resolved]
  - Bone pain [Unknown]
  - Dry eye [Unknown]
  - Malaise [Unknown]
  - Skin exfoliation [Unknown]
  - Nausea [Unknown]
  - Dry skin [Not Recovered/Not Resolved]
